FAERS Safety Report 9624673 (Version 2)
Quarter: 2013Q4

REPORT INFORMATION
  Report Type: Spontaneous
  Country: US (occurrence: US)
  Receive Date: 20131015
  Receipt Date: 20131106
  Transmission Date: 20140711
  Serious: Yes (Hospitalization, Other)
  Sender: FDA-Public Use
  Company Number: PHHY2013US111301

PATIENT
  Age: 67 Year
  Sex: Male

DRUGS (8)
  1. DIGOXIN [Suspect]
     Indication: CARDIAC FAILURE
  2. DIGOXIN [Interacting]
     Indication: ATRIAL FIBRILLATION
  3. IBUPROFEN [Interacting]
     Indication: GOUT
  4. ASPIRIN [Suspect]
  5. ATENOLOL [Concomitant]
  6. HYDROXYZINE [Concomitant]
  7. TAMSULOSIN [Concomitant]
  8. ALLOPURINOL [Concomitant]

REACTIONS (18)
  - Toxicity to various agents [Recovering/Resolving]
  - Cardioactive drug level increased [Recovering/Resolving]
  - Visual impairment [Unknown]
  - Vision blurred [Unknown]
  - Depression [Unknown]
  - Confusional state [Unknown]
  - Decreased appetite [Unknown]
  - Vomiting [Unknown]
  - Nausea [Unknown]
  - Renal failure chronic [Unknown]
  - Blood potassium increased [Recovering/Resolving]
  - Blood urea increased [Recovering/Resolving]
  - Blood creatinine increased [Recovering/Resolving]
  - Glomerular filtration rate decreased [Recovering/Resolving]
  - Gravitational oedema [Unknown]
  - Drug interaction [Unknown]
  - Cardiac murmur [Unknown]
  - Heart rate irregular [Unknown]
